FAERS Safety Report 7473761-5 (Version None)
Quarter: 2011Q2

REPORT INFORMATION
  Report Type: 
  Country: None (occurrence: None)
  Receive Date: 20110511
  Receipt Date: 20110427
  Transmission Date: 20111010
  Serious: Yes (Hospitalization, Other)
  Sender: FDA-Public Use
  Company Number: FR-JNJFOC-20110500740

PATIENT
  Sex: Male
  Weight: 3.47 kg

DRUGS (4)
  1. HALDOL [Suspect]
     Indication: DRUG EXPOSURE DURING PREGNANCY
     Route: 064
  2. CHLORPROMAZINE HCL [Suspect]
     Indication: DRUG EXPOSURE DURING PREGNANCY
     Route: 064
  3. TARDYFERON [Concomitant]
     Indication: DRUG EXPOSURE DURING PREGNANCY
     Route: 064
  4. MAGNESIUM [Concomitant]
     Indication: DRUG EXPOSURE DURING PREGNANCY
     Route: 064

REACTIONS (5)
  - FOETAL HEART RATE DECELERATION [None]
  - FOETAL ALCOHOL SYNDROME [None]
  - WITHDRAWAL SYNDROME [None]
  - NEONATAL DISORDER [None]
  - MATERNAL DRUGS AFFECTING FOETUS [None]
